FAERS Safety Report 13935023 (Version 1)
Quarter: 2017Q3

REPORT INFORMATION
  Report Type: Spontaneous
  Country: US (occurrence: None)
  Receive Date: 20170901
  Receipt Date: 20170901
  Transmission Date: 20171127
  Serious: Yes (Hospitalization)
  Sender: FDA-Public Use
  Company Number: None

PATIENT
  Age: 66 Year
  Sex: Female

DRUGS (6)
  1. ESBRIET [Suspect]
     Active Substance: PIRFENIDONE
     Indication: NEOPLASM MALIGNANT
     Route: 048
     Dates: start: 20141226
  2. CLOPIDOGREL [Concomitant]
     Active Substance: CLOPIDOGREL BISULFATE
  3. ATORVASTATIN [Concomitant]
     Active Substance: ATORVASTATIN
  4. SYNTHROID [Concomitant]
     Active Substance: LEVOTHYROXINE SODIUM
  5. AMOX [Concomitant]
     Active Substance: UNSPECIFIED INGREDIENT
  6. NITROGLYCERN (GLYCERYL TRINITRATE) [Concomitant]
     Active Substance: NITROGLYCERIN

REACTIONS (2)
  - Photosensitivity reaction [None]
  - Myocardial infarction [None]

NARRATIVE: CASE EVENT DATE: 20170719
